FAERS Safety Report 7864714-3 (Version None)
Quarter: 2011Q4

REPORT INFORMATION
  Report Type: 
  Country: None (occurrence: None)
  Receive Date: 20111028
  Receipt Date: 20111014
  Transmission Date: 20120403
  Serious: Yes (Other)
  Sender: FDA-Public Use
  Company Number: US-PFIZER INC-2011255381

PATIENT
  Age: 45 Year
  Sex: Female

DRUGS (1)
  1. HALOPERIDOL [Suspect]
     Indication: AGITATION
     Dosage: 5 MG, UNK
     Route: 042

REACTIONS (1)
  - CARDIAC ARREST [None]
